FAERS Safety Report 23356327 (Version 2)
Quarter: 2024Q1

REPORT INFORMATION
  Report Type: Other
  Country: JP (occurrence: JP)
  Receive Date: 20240102
  Receipt Date: 20240209
  Transmission Date: 20240409
  Serious: Yes (Life-Threatening, Hospitalization, Other)
  Sender: FDA-Public Use
  Company Number: JP-CHUGAI-2021033101

PATIENT
  Age: 63 Year
  Sex: Male
  Weight: 69 kg

DRUGS (24)
  1. ZELBORAF [Suspect]
     Active Substance: VEMURAFENIB
     Indication: Erdheim-Chester disease
     Route: 048
     Dates: start: 20211213, end: 20220124
  2. ZELBORAF [Suspect]
     Active Substance: VEMURAFENIB
     Route: 048
     Dates: start: 20220405, end: 20220412
  3. ZELBORAF [Suspect]
     Active Substance: VEMURAFENIB
     Route: 048
     Dates: start: 20220413, end: 20220416
  4. CYTARABINE [Suspect]
     Active Substance: CYTARABINE
     Indication: Erdheim-Chester disease
     Route: 065
     Dates: start: 20220225, end: 20220301
  5. CYTARABINE [Suspect]
     Active Substance: CYTARABINE
     Dosage: AS REQUIRED
     Route: 065
     Dates: start: 20220418, end: 20220418
  6. SULFAMETHOXAZOLE\TRIMETHOPRIM [Suspect]
     Active Substance: SULFAMETHOXAZOLE\TRIMETHOPRIM
     Indication: Prophylaxis
     Route: 065
     Dates: start: 20211119, end: 20220125
  7. PREDNISOLONE SODIUM SUCCINATE [Concomitant]
     Active Substance: PREDNISOLONE SODIUM SUCCINATE
     Indication: Erdheim-Chester disease
     Dosage: TAPERING WAS ENDED
     Route: 065
     Dates: start: 20211116, end: 20211222
  8. LANSOPRAZOLE [Concomitant]
     Active Substance: LANSOPRAZOLE
     Indication: Prophylaxis
     Route: 048
     Dates: start: 20211021, end: 20211228
  9. ALFACALCIDOL [Concomitant]
     Active Substance: ALFACALCIDOL
     Indication: Prophylaxis
     Dates: start: 20211124, end: 20211228
  10. ESZOPICLONE [Concomitant]
     Active Substance: ESZOPICLONE
     Dates: start: 20211028, end: 20220417
  11. LEVOFLOXACIN HEMIHYDRATE [Concomitant]
     Active Substance: LEVOFLOXACIN
     Indication: Prophylaxis
     Dates: start: 20211228, end: 20220105
  12. CALONAL [Concomitant]
     Active Substance: ACETAMINOPHEN
     Indication: Erdheim-Chester disease
     Dosage: AS REQUIRED
     Dates: start: 20211227, end: 20220404
  13. MIYA-BM [Concomitant]
     Active Substance: CLOSTRIDIUM BUTYRICUM SPORES STRAIN M-55
     Indication: Prophylaxis
     Dates: start: 20220119, end: 20220418
  14. CEFEPIME HYDROCHLORIDE [Concomitant]
     Active Substance: CEFEPIME HYDROCHLORIDE
     Indication: Prophylaxis
     Dates: start: 20211211, end: 20211215
  15. CEFEPIME HYDROCHLORIDE [Concomitant]
     Active Substance: CEFEPIME HYDROCHLORIDE
     Dates: start: 20220124, end: 20220203
  16. CEFEPIME HYDROCHLORIDE [Concomitant]
     Active Substance: CEFEPIME HYDROCHLORIDE
     Dates: start: 20220405, end: 20220417
  17. OLOPATADINE HYDROCHLORIDE [Concomitant]
     Active Substance: OLOPATADINE HYDROCHLORIDE
     Indication: Prophylaxis
     Dates: start: 20220125, end: 20220310
  18. NEXIUM [Concomitant]
     Active Substance: ESOMEPRAZOLE MAGNESIUM
     Indication: Prophylaxis
     Dates: start: 20220127, end: 20220418
  19. FLUCONAZOLE [Concomitant]
     Active Substance: FLUCONAZOLE
     Indication: Prophylaxis
     Dates: start: 20220209, end: 20220418
  20. FEBUXOSTAT [Concomitant]
     Active Substance: FEBUXOSTAT
     Indication: Prophylaxis
     Dates: start: 20220225, end: 20220418
  21. ZOSYN [Concomitant]
     Active Substance: PIPERACILLIN SODIUM\TAZOBACTAM SODIUM
     Indication: Prophylaxis
     Dates: start: 20220204, end: 20220215
  22. PREDNISOLONE [Concomitant]
     Active Substance: PREDNISOLONE
     Indication: Erdheim-Chester disease
     Dates: start: 20211116, end: 20211226
  23. PREDNISOLONE [Concomitant]
     Active Substance: PREDNISOLONE
     Dates: start: 20211223
  24. PREDNISOLONE [Concomitant]
     Active Substance: PREDNISOLONE
     Dates: end: 20211226

REACTIONS (8)
  - Interstitial lung disease [Recovered/Resolved]
  - Drug hypersensitivity [Recovered/Resolved]
  - Hypokalaemia [Recovered/Resolved]
  - Neutrophil count decreased [Not Recovered/Not Resolved]
  - Platelet count decreased [Not Recovered/Not Resolved]
  - Anaemia [Not Recovered/Not Resolved]
  - Liver disorder [Recovered/Resolved]
  - Off label use [Unknown]

NARRATIVE: CASE EVENT DATE: 20211215
